FAERS Safety Report 8803224 (Version 3)
Quarter: 2015Q1

REPORT INFORMATION
  Report Type: Report from Study
  Country: US (occurrence: US)
  Receive Date: 20120924
  Receipt Date: 20150305
  Transmission Date: 20150721
  Serious: Yes (Death, Other)
  Sender: FDA-Public Use
  Company Number: US-ROCHE-1102392

PATIENT
  Age: 63 Year
  Sex: Male

DRUGS (11)
  1. XELODA [Concomitant]
     Active Substance: CAPECITABINE
     Route: 065
  2. PERCOCET [Concomitant]
     Active Substance: ACETAMINOPHEN\OXYCODONE HYDROCHLORIDE
  3. CIPROFLOXACIN. [Concomitant]
     Active Substance: CIPROFLOXACIN
  4. DECADRON [Concomitant]
     Active Substance: DEXAMETHASONE
     Route: 065
  5. OXALIPLATIN. [Concomitant]
     Active Substance: OXALIPLATIN
     Route: 065
     Dates: start: 20071120
  6. ZANTAC [Concomitant]
     Active Substance: RANITIDINE HYDROCHLORIDE
     Route: 065
  7. AVASTIN [Suspect]
     Active Substance: BEVACIZUMAB
     Indication: COLON CANCER
     Route: 042
     Dates: start: 20071120
  8. AVASTIN [Suspect]
     Active Substance: BEVACIZUMAB
     Route: 042
     Dates: start: 20071120
  9. AVASTIN [Suspect]
     Active Substance: BEVACIZUMAB
     Route: 042
     Dates: start: 20071120
  10. BENADRYL [Concomitant]
     Active Substance: DIPHENHYDRAMINE HYDROCHLORIDE
     Route: 048
  11. VICODIN [Concomitant]
     Active Substance: ACETAMINOPHEN\HYDROCODONE BITARTRATE

REACTIONS (10)
  - Death [Fatal]
  - Proctalgia [Unknown]
  - Nausea [Unknown]
  - Haemorrhage [Unknown]
  - Intestinal mass [Unknown]
  - Weight decreased [Unknown]
  - Haemorrhoids [Unknown]
  - Anorectal discomfort [Unknown]
  - Disease progression [Unknown]
  - Constipation [Unknown]

NARRATIVE: CASE EVENT DATE: 20090101
